FAERS Safety Report 22096656 (Version 1)
Quarter: 2023Q1

REPORT INFORMATION
  Report Type: Spontaneous
  Country: None (occurrence: BR)
  Receive Date: 20230315
  Receipt Date: 20230315
  Transmission Date: 20230418
  Serious: Yes (Other)
  Sender: FDA-Public Use
  Company Number: BR-Y-mAbs Therapeutics-2139066

PATIENT

DRUGS (2)
  1. DANYELZA [Suspect]
     Active Substance: NAXITAMAB-GQGK
     Indication: Neuroblastoma
  2. LEUKINE [Concomitant]
     Active Substance: SARGRAMOSTIM

REACTIONS (1)
  - Anaphylactic shock [Unknown]
